FAERS Safety Report 4567345-6 (Version None)
Quarter: 2005Q1

REPORT INFORMATION
  Report Type: 
  Country: None (occurrence: None)
  Receive Date: 20050127
  Receipt Date: 20050111
  Transmission Date: 20050727
  Serious: Yes (Disabling)
  Sender: FDA-Public Use
  Company Number: 200510033BFR

PATIENT
  Age: 10 Year
  Sex: Male
  Weight: 40 kg

DRUGS (1)
  1. CIPROFLOXACIN [Suspect]
     Indication: POSTOPERATIVE ABSCESS
     Dates: start: 20041001

REACTIONS (1)
  - ARTHRALGIA [None]
